FAERS Safety Report 13142128 (Version 4)
Quarter: 2017Q3

REPORT INFORMATION
  Report Type: Report from Study
  Country: US (occurrence: US)
  Receive Date: 20170124
  Receipt Date: 20170704
  Transmission Date: 20171127
  Serious: Yes (Hospitalization, Disabling, Other)
  Sender: FDA-Public Use
  Company Number: PHEH2017US001849

PATIENT
  Age: 62 Year
  Sex: Female

DRUGS (2)
  1. GILENYA [Suspect]
     Active Substance: FINGOLIMOD HYDROCHLORIDE
     Indication: RELAPSING-REMITTING MULTIPLE SCLEROSIS
     Dosage: 0.5 MG, QD
     Route: 048
     Dates: start: 20120115, end: 20151015
  2. TYSABRI [Suspect]
     Active Substance: NATALIZUMAB
     Indication: RELAPSING-REMITTING MULTIPLE SCLEROSIS
     Dosage: UNK
     Route: 065

REACTIONS (11)
  - Cognitive disorder [Unknown]
  - Fall [Recovering/Resolving]
  - White blood cell count decreased [Unknown]
  - Blood count abnormal [Unknown]
  - Red blood cell count increased [Unknown]
  - Pneumonia [Recovering/Resolving]
  - Femur fracture [Recovering/Resolving]
  - Post procedural infection [Unknown]
  - Anaemia [Recovering/Resolving]
  - Mobility decreased [Not Recovered/Not Resolved]
  - Malaise [Unknown]

NARRATIVE: CASE EVENT DATE: 20161001
